FAERS Safety Report 21837838 (Version 2)
Quarter: 2023Q1

REPORT INFORMATION
  Report Type: Spontaneous
  Country: CA (occurrence: CA)
  Receive Date: 20230109
  Receipt Date: 20230314
  Transmission Date: 20230417
  Serious: Yes (Other)
  Sender: FDA-Public Use
  Company Number: CA-PFIZER INC-PV202200129843

PATIENT
  Age: 54 Year
  Sex: Female

DRUGS (2)
  1. IBRANCE [Suspect]
     Active Substance: PALBOCICLIB
     Dosage: UNK
     Dates: start: 20221214
  2. FULVESTRANT [Concomitant]
     Active Substance: FULVESTRANT
     Dosage: 500 MG (10 ML) (50 MG/ML), EVERY 14 DAY FOR 3 DOSES
     Route: 030

REACTIONS (10)
  - Cough [Recovering/Resolving]
  - Dizziness [Recovering/Resolving]
  - Headache [Recovering/Resolving]
  - Dyspnoea [Recovering/Resolving]
  - Balance disorder [Recovering/Resolving]
  - Aphonia [Recovering/Resolving]
  - Pollakiuria [Recovering/Resolving]
  - Muscle twitching [Recovering/Resolving]
  - Pain [Recovering/Resolving]
  - Tremor [Recovering/Resolving]

NARRATIVE: CASE EVENT DATE: 20221201
